FAERS Safety Report 10410298 (Version 3)
Quarter: 2015Q1

REPORT INFORMATION
  Report Type: Report from Study
  Country: US (occurrence: US)
  Receive Date: 20140826
  Receipt Date: 20150313
  Transmission Date: 20150720
  Serious: Yes (Other)
  Sender: FDA-Public Use
  Company Number: US-SA-2014SA054039

PATIENT
  Age: 51 Year
  Sex: Female

DRUGS (1)
  1. AUBAGIO [Suspect]
     Active Substance: TERIFLUNOMIDE
     Indication: MULTIPLE SCLEROSIS
     Route: 048
     Dates: start: 20140410, end: 20140731

REACTIONS (25)
  - Burning sensation [Not Recovered/Not Resolved]
  - Furuncle [Unknown]
  - Musculoskeletal stiffness [Recovering/Resolving]
  - Ocular hyperaemia [Recovering/Resolving]
  - Rash pustular [Not Recovered/Not Resolved]
  - Rash macular [Not Recovered/Not Resolved]
  - Paraesthesia [Recovering/Resolving]
  - Muscle twitching [Not Recovered/Not Resolved]
  - Oral disorder [Unknown]
  - Haematocrit decreased [Unknown]
  - Oral pustule [Unknown]
  - Anaemia [Recovering/Resolving]
  - Blister [Recovering/Resolving]
  - Pain [Unknown]
  - Eczema weeping [Not Recovered/Not Resolved]
  - Skin irritation [Unknown]
  - Alopecia [Recovering/Resolving]
  - Purulent discharge [Unknown]
  - Skin exfoliation [Unknown]
  - Acne [Not Recovered/Not Resolved]
  - Stomatitis [Recovering/Resolving]
  - Diarrhoea [Recovering/Resolving]
  - Erythema [Unknown]
  - Pain [Recovering/Resolving]
  - Hypoaesthesia [Recovering/Resolving]

NARRATIVE: CASE EVENT DATE: 20140415
